FAERS Safety Report 4567785-5 (Version None)
Quarter: 2005Q1

REPORT INFORMATION
  Report Type: 
  Country: None (occurrence: None)
  Receive Date: 20050127
  Receipt Date: 20050119
  Transmission Date: 20050727
  Serious: Yes (Death, Hospitalization)
  Sender: FDA-Public Use
  Company Number: 2005006514

PATIENT
  Sex: Female

DRUGS (5)
  1. LYRICA [Suspect]
     Indication: ILL-DEFINED DISORDER
     Dosage: ORAL
     Route: 048
  2. SALBUTAMOL (SALBUTAMOL) [Concomitant]
  3. NITROGLYCERIN [Concomitant]
  4. CALCIUM CHANNEL BLOCKERS (CALCIUM CHANNEL BLOCKERS) [Concomitant]
  5. SERETIDE MITE (FLUTICASONE PROPIONATE, SALMETEROL XINAFOATE) [Concomitant]

REACTIONS (3)
  - CARDIOMEGALY [None]
  - LIVER DISORDER [None]
  - OEDEMA [None]
